FAERS Safety Report 17755883 (Version 1)
Quarter: 2020Q2

REPORT INFORMATION
  Report Type: Spontaneous
  Country: US (occurrence: US)
  Receive Date: 20200506
  Receipt Date: 20200506
  Transmission Date: 20200714
  Serious: No
  Sender: FDA-Public Use
  Company Number: None

PATIENT
  Age: 16 Month
  Sex: Male
  Weight: 11.5 kg

DRUGS (4)
  1. SYMBICORT [Suspect]
     Active Substance: BUDESONIDE\FORMOTEROL FUMARATE DIHYDRATE
     Indication: BRONCHOPULMONARY DYSPLASIA
     Route: 055
     Dates: start: 20200409
  2. ALBUTEROL NEBULIZATION [Concomitant]
     Dates: start: 20200415
  3. DORNASE ALFA NEBULIZATION [Concomitant]
     Dates: start: 20200318
  4. IPRATROPIUM NEBULIZATION [Concomitant]
     Dates: start: 20200410

REACTIONS (3)
  - Therapy interrupted [None]
  - Drug dose omission by device [None]
  - Device malfunction [None]

NARRATIVE: CASE EVENT DATE: 20200506
